FAERS Safety Report 5312878-8 (Version None)
Quarter: 2007Q2

REPORT INFORMATION
  Report Type: 
  Country: None (occurrence: None)
  Receive Date: 20070430
  Receipt Date: 20070418
  Transmission Date: 20071010
  Serious: Yes (Other)
  Sender: FDA-Public Use
  Company Number: US-PFIZER INC-2007032004

PATIENT
  Sex: Female

DRUGS (17)
  1. CHANTIX [Suspect]
     Indication: SMOKING CESSATION THERAPY
     Dates: start: 20070128
  2. IBUPROFEN [Concomitant]
  3. TRIFLUOPERAZINE HCL [Concomitant]
  4. KEMADRIN [Concomitant]
  5. TEGRETOL [Concomitant]
  6. NIASPAN [Concomitant]
  7. VERAPAMIL [Concomitant]
  8. HYDROCHLOROTHIAZIDE [Concomitant]
  9. DOCUSATE [Concomitant]
  10. ZOCOR [Concomitant]
  11. FOLATE [Concomitant]
  12. CALCIUM CHLORIDE [Concomitant]
  13. ACTIVELLA [Concomitant]
  14. FISH OIL [Concomitant]
  15. MULTIVITAMINS WITH MINERALS [Concomitant]
  16. VITAMIN B6 [Concomitant]
  17. VITAMIN B-12 [Concomitant]

REACTIONS (6)
  - DIPLOPIA [None]
  - GAIT DISTURBANCE [None]
  - HEADACHE [None]
  - MALAISE [None]
  - NAUSEA [None]
  - VISION BLURRED [None]
